FAERS Safety Report 11467801 (Version 2)
Quarter: 2015Q3

REPORT INFORMATION
  Report Type: Spontaneous
  Country: US (occurrence: US)
  Receive Date: 20150908
  Receipt Date: 20150911
  Transmission Date: 20151125
  Serious: Yes (Death)
  Sender: FDA-Public Use
  Company Number: US-UNITED THERAPEUTICS-UNT-2015-010891

PATIENT
  Sex: Female
  Weight: 96.96 kg

DRUGS (1)
  1. REMODULIN [Suspect]
     Active Substance: TREPROSTINIL
     Indication: PULMONARY HYPERTENSION
     Dosage: UNK
     Route: 058
     Dates: start: 20150812, end: 20150829

REACTIONS (2)
  - Pulmonary arterial hypertension [Fatal]
  - Hepatic failure [Fatal]

NARRATIVE: CASE EVENT DATE: 2015
